FAERS Safety Report 14564985 (Version 3)
Quarter: 2018Q1

REPORT INFORMATION
  Report Type: Spontaneous
  Country: US (occurrence: US)
  Receive Date: 20180223
  Receipt Date: 20180316
  Transmission Date: 20180509
  Serious: Yes (Other)
  Sender: FDA-Public Use
  Company Number: US-009507513-1802USA004195

PATIENT
  Age: 23 Year
  Sex: Female
  Weight: 68.93 kg

DRUGS (1)
  1. NEXPLANON [Suspect]
     Active Substance: ETONOGESTREL
     Indication: CONTRACEPTION
     Dosage: 1 ROD EVERY 3 YEARS
     Route: 059
     Dates: start: 20170629, end: 20180306

REACTIONS (7)
  - Device dislocation [Recovered/Resolved]
  - Anxiety [Not Recovered/Not Resolved]
  - Implant site swelling [Unknown]
  - Complication of device removal [Recovered/Resolved]
  - Interventional procedure [Unknown]
  - Device difficult to use [Recovered/Resolved]
  - Metrorrhagia [Not Recovered/Not Resolved]

NARRATIVE: CASE EVENT DATE: 2017
